FAERS Safety Report 4753981-0 (Version None)
Quarter: 2005Q3

REPORT INFORMATION
  Report Type: 
  Country: None (occurrence: None)
  Receive Date: 20050826
  Receipt Date: 20050816
  Transmission Date: 20060218
  Serious: Yes (Other)
  Sender: FDA-Public Use
  Company Number: 2005116181

PATIENT
  Age: 77 Year
  Sex: Female
  Weight: 54.4316 kg

DRUGS (7)
  1. LIPITOR [Suspect]
     Indication: BLOOD CHOLESTEROL INCREASED
     Dosage: 10 MG (10 MG, 1 IN 1 D), ORAL
     Route: 048
     Dates: start: 20010101, end: 20050811
  2. PLAVIX [Concomitant]
  3. SYNTHORID (LEVOTHYROXIE SODIUM) [Concomitant]
  4. BENICAR [Concomitant]
  5. TENORMN (ATENOLOL) [Concomitant]
  6. NORVASC [Concomitant]
  7. DIAZIDE (GLICLAZIDE) [Concomitant]

REACTIONS (10)
  - BURNING SENSATION [None]
  - FEELING ABNORMAL [None]
  - MENTAL DISORDER [None]
  - MIDDLE INSOMNIA [None]
  - MUSCLE SPASMS [None]
  - NAUSEA [None]
  - PAIN IN EXTREMITY [None]
  - RENAL VESSEL DISORDER [None]
  - SENSORY DISTURBANCE [None]
  - THINKING ABNORMAL [None]
